FAERS Safety Report 6668336-1 (Version None)
Quarter: 2010Q2

REPORT INFORMATION
  Report Type: 
  Country: None (occurrence: None)
  Receive Date: 20100406
  Receipt Date: 20100323
  Transmission Date: 20101027
  Serious: Yes (Death)
  Sender: FDA-Public Use
  Company Number: GB-TYCO HEALTHCARE/MALLINCKRODT-T201000892

PATIENT
  Age: 40 Year
  Sex: Female

DRUGS (3)
  1. ANAFRANIL CAP [Suspect]
     Dosage: UNK
  2. AMISULPRIDE [Suspect]
     Dosage: UNK
  3. LITHIUM CARBONATE [Suspect]
     Dosage: UNK

REACTIONS (5)
  - CEREBRAL HAEMORRHAGE [None]
  - MEDICATION ERROR [None]
  - NEUROLEPTIC MALIGNANT SYNDROME [None]
  - RENAL FAILURE [None]
  - RHABDOMYOLYSIS [None]
